FAERS Safety Report 9204166 (Version 2)
Quarter: 2013Q2

REPORT INFORMATION
  Report Type: Spontaneous
  Country: US (occurrence: None)
  Receive Date: 20130329
  Receipt Date: 20130425
  Transmission Date: 20140414
  Serious: Yes (Hospitalization)
  Sender: FDA-Public Use
  Company Number: JPI-P-030868

PATIENT
  Age: 41 Year
  Sex: Female

DRUGS (18)
  1. XYREM [Suspect]
     Indication: NARCOLEPSY
     Dosage: 9 GM (4.5 GM, 2 IN 1 D) ,ORAL
     Route: 048
     Dates: start: 20090317
  2. ARIPIPRAZOLE [Concomitant]
  3. BACLOFEN [Concomitant]
  4. DIPHENHYDRAMINE HYDROCHLORIDE [Concomitant]
  5. BUPROPION [Concomitant]
  6. CALCIUM [Concomitant]
  7. WARFARIN SODIUM [Concomitant]
  8. ESCITALOPRAM OXALATE [Concomitant]
  9. DIHYDROERGOTAMINE MESYLATE [Concomitant]
  10. OMEPRAZOLE [Concomitant]
  11. ORPHENADRINE HYDROCHLORIDE [Concomitant]
  12. PROPRANOLOL [Concomitant]
  13. SIMVASTATIN [Concomitant]
  14. LEVOTHYROXINE SODIUM [Concomitant]
  15. ONDANSETRON HYDROCHLORIDE [Concomitant]
  16. ZONISAMIDE [Concomitant]
  17. METHYLPHENIDATE [Concomitant]
  18. ARMODAFINIL [Concomitant]

REACTIONS (3)
  - Investigation [None]
  - Dry mouth [None]
  - Migraine [None]
